FAERS Safety Report 21904269 (Version 1)
Quarter: 2023Q1

REPORT INFORMATION
  Report Type: Report from Study
  Country: DE (occurrence: DE)
  Receive Date: 20230124
  Receipt Date: 20230124
  Transmission Date: 20230417
  Serious: Yes (Hospitalization)
  Sender: FDA-Public Use
  Company Number: DE-SA-SAC20221003000174

PATIENT
  Age: 62 Year
  Sex: Male
  Weight: 79 kg

DRUGS (13)
  1. ISATUXIMAB [Suspect]
     Active Substance: ISATUXIMAB
     Indication: Plasma cell myeloma
     Dosage: 10 MG/KG, QD
     Route: 042
     Dates: start: 20200203, end: 20200203
  2. ISATUXIMAB [Suspect]
     Active Substance: ISATUXIMAB
     Dosage: 10 MG/KG, QD
     Route: 042
     Dates: start: 20220927, end: 20220927
  3. ISATUXIMAB [Suspect]
     Active Substance: ISATUXIMAB
     Dosage: 10 MG/KG, QD
     Dates: start: 20221031, end: 20221031
  4. CARFILZOMIB [Suspect]
     Active Substance: CARFILZOMIB
     Indication: Plasma cell myeloma
     Dosage: 70 UG/M2, QD
     Route: 042
     Dates: start: 20200203, end: 20200203
  5. CARFILZOMIB [Suspect]
     Active Substance: CARFILZOMIB
     Dosage: 70 UG/M2, QD
     Route: 042
     Dates: start: 20220327, end: 20220327
  6. CARFILZOMIB [Suspect]
     Active Substance: CARFILZOMIB
     Dosage: 70 UG/M2, QD
     Dates: start: 20221031, end: 20221031
  7. LENALIDOMIDE [Suspect]
     Active Substance: LENALIDOMIDE
     Indication: Plasma cell myeloma
     Dosage: 10 MG, QD
     Route: 048
     Dates: start: 20200203, end: 20200203
  8. LENALIDOMIDE [Suspect]
     Active Substance: LENALIDOMIDE
     Dosage: 10 MG, QD
     Route: 048
     Dates: start: 20221028, end: 20221028
  9. DEXAMETHASONE [Concomitant]
     Active Substance: DEXAMETHASONE
     Indication: Plasma cell myeloma
     Dosage: 40 UG, QD
     Route: 048
     Dates: start: 20200203, end: 20200203
  10. DEXAMETHASONE [Concomitant]
     Active Substance: DEXAMETHASONE
     Dosage: 40 UG, QD
     Route: 048
     Dates: start: 20210907, end: 20210907
  11. COTRIM [Concomitant]
     Active Substance: SULFAMETHOXAZOLE\TRIMETHOPRIM
     Indication: Antibiotic prophylaxis
     Dosage: 360 MG, QD
     Route: 048
     Dates: start: 20200302, end: 20220928
  12. ASPIRIN [Concomitant]
     Active Substance: ASPIRIN
     Indication: Prophylaxis
     Dosage: 100 MG
     Route: 048
     Dates: start: 20210608, end: 20220928
  13. ACYCLOVIR [Concomitant]
     Active Substance: ACYCLOVIR
     Indication: Antiviral prophylaxis
     Dosage: 800 MG, BID
     Route: 048
     Dates: start: 20220203, end: 20220928

REACTIONS (2)
  - Cholecystitis acute [Recovered/Resolved]
  - COVID-19 pneumonia [Recovered/Resolved]

NARRATIVE: CASE EVENT DATE: 20220929
